FAERS Safety Report 4660845-X (Version None)
Quarter: 2005Q2

REPORT INFORMATION
  Report Type: 
  Country: None (occurrence: None)
  Receive Date: 20050422
  Receipt Date: 20040224
  Transmission Date: 20051028
  Serious: No
  Sender: FDA-Public Use
  Company Number: APP200400208

PATIENT
  Age: 71 Year
  Sex: Male

DRUGS (1)
  1. HEPARIN SODIUM INJECTION [Suspect]
     Indication: ANTICOAGULANT THERAPY
     Dosage: 20 ML (5 USP U/ML,ONCE),INJECTION
     Route: 042
     Dates: start: 20040202, end: 20040202

REACTIONS (1)
  - BLEEDING TIME PROLONGED [None]
